FAERS Safety Report 10242122 (Version 1)
Quarter: 2020Q3

REPORT INFORMATION
  Report Type: Report from Study
  Country: GB (occurrence: GB)
  Receive Date: 20140617
  Receipt Date: 20140617
  Transmission Date: 20201104
  Serious: Yes (Hospitalization)
  Sender: FDA-Public Use
  Company Number: PHHY2014GB070620

PATIENT
  Age: 68 Year
  Sex: Male

DRUGS (21)
  1. SIMVASTATIN. [Concomitant]
     Active Substance: SIMVASTATIN
     Indication: BLOOD CHOLESTEROL
     Dosage: 40 MG, DAILY DOSE
     Route: 048
     Dates: start: 2003
  2. OXALIPLATIN. [Suspect]
     Active Substance: OXALIPLATIN
     Indication: GASTROOESOPHAGEAL CANCER
     Dosage: 140 MG, UNK
     Route: 042
     Dates: start: 20130627
  3. ONARTUZUMAB. [Suspect]
     Active Substance: ONARTUZUMAB
     Indication: GASTROOESOPHAGEAL CANCER
     Dosage: 1030 MG, ONCE EVERY 2 WEEKS
     Route: 042
     Dates: start: 20130627
  4. OMEPRAZOLE. [Concomitant]
     Active Substance: OMEPRAZOLE
     Indication: GASTROOESOPHAGEAL REFLUX DISEASE
     Dosage: 20 MG, DAILY DOSE
     Route: 048
     Dates: start: 2008
  5. 5?FLUOROURACIL [Suspect]
     Active Substance: FLUOROURACIL
     Dosage: 5520 MG, UNK
     Route: 042
  6. CYCLIZINE [Concomitant]
     Active Substance: CYCLIZINE
     Indication: VOMITING
     Dosage: 20 MG, DAILY DOSE
     Route: 048
     Dates: start: 20130903
  7. LANSOPRAZOLE. [Concomitant]
     Active Substance: LANSOPRAZOLE
     Indication: GASTRIC PERFORATION
     Dosage: 30 MG, DAILY DOSE
     Route: 048
     Dates: start: 20131024, end: 20131029
  8. DEXAMETHASONE. [Concomitant]
     Active Substance: DEXAMETHASONE
     Indication: FATIGUE
     Dosage: 4 MG, UNK
  9. FENTANYL. [Concomitant]
     Active Substance: FENTANYL
     Dosage: 50 MG, DAILY DOSE
     Route: 042
     Dates: start: 20131030, end: 20131030
  10. 5?FLUOROURACIL [Suspect]
     Active Substance: FLUOROURACIL
     Indication: GASTROOESOPHAGEAL CANCER
     Dosage: 920 MG, UNK
     Route: 040
     Dates: start: 20130627
  11. FOLINIC ACID [Suspect]
     Active Substance: LEUCOVORIN
     Indication: GASTROOESOPHAGEAL CANCER
     Dosage: 920 MG, UNK
     Route: 042
     Dates: start: 20130627
  12. MIDAZOLAM HYDROCHLORIDE. [Concomitant]
     Active Substance: MIDAZOLAM HYDROCHLORIDE
     Dosage: 3 MG, DAILY DOSE
     Route: 042
     Dates: start: 20131030, end: 20131030
  13. SALINE ORAL OTC [Concomitant]
     Active Substance: SODIUM CHLORIDE
     Dosage: 1000 ML, DAILY DOSE
     Route: 042
     Dates: start: 20131024, end: 20131031
  14. DEXTROSE. [Concomitant]
     Active Substance: DEXTROSE
     Dosage: 1000 ML, DAILY DOSE
     Route: 042
     Dates: start: 20131029, end: 20131029
  15. PARACETAMOL [Concomitant]
     Active Substance: ACETAMINOPHEN
     Indication: ANALGESIC THERAPY
     Route: 048
  16. ONDANSETRON [Concomitant]
     Active Substance: ONDANSETRON
     Indication: NAUSEA
     Dosage: 8 MG, DAILY DOSE
     Route: 048
     Dates: start: 20131016, end: 20131027
  17. HALOPERIDOL. [Concomitant]
     Active Substance: HALOPERIDOL
     Indication: NAUSEA
     Dosage: 1 MG, DAILY DOSE
     Route: 048
     Dates: start: 20131024
  18. DEXAMETHASONE. [Concomitant]
     Active Substance: DEXAMETHASONE
     Indication: LETHARGY
     Dosage: 2 MG, DAILY DOSE
     Route: 048
     Dates: start: 20130926, end: 20131003
  19. RAMIPRIL. [Concomitant]
     Active Substance: RAMIPRIL
     Indication: HYPERTENSION
     Route: 048
  20. FLUCONAZOLE. [Concomitant]
     Active Substance: FLUCONAZOLE
     Indication: ORAL CANDIDIASIS
     Dosage: 100 MG, DAILY DOSE
     Route: 048
     Dates: start: 20131024, end: 20131101
  21. HARTMANN^S SOLUTION [Concomitant]
     Active Substance: CALCIUM CHLORIDE\POTASSIUM CHLORIDE\SODIUM CHLORIDE\SODIUM LACTATE
     Dosage: 1000 ML, DAILY DOSE
     Route: 042
     Dates: start: 20131025, end: 20131031

REACTIONS (5)
  - Device occlusion [Recovered/Resolved]
  - Dysphagia [Unknown]
  - Vomiting [Unknown]
  - Fatigue [Recovered/Resolved]
  - Nausea [Unknown]

NARRATIVE: CASE EVENT DATE: 20131024
